FAERS Safety Report 8462367-7 (Version None)
Quarter: 2012Q2

REPORT INFORMATION
  Report Type: 
  Country: None (occurrence: None)
  Receive Date: 20120625
  Receipt Date: 20120615
  Transmission Date: 20120825
  Serious: Yes (Life-Threatening, Hospitalization)
  Sender: FDA-Public Use
  Company Number: US-PFIZER INC-2012119530

PATIENT
  Sex: Female
  Weight: 66.2 kg

DRUGS (16)
  1. CLONIDINE [Concomitant]
     Indication: HYPERTENSION
     Dosage: 0.1 MG, IN THE MORNING
     Route: 048
     Dates: start: 20120418
  2. PROCHLORPERAZINE [Concomitant]
     Indication: NAUSEA
     Dosage: AS NEEDED
     Route: 048
     Dates: start: 20110101
  3. CELEXA [Concomitant]
     Indication: DEPRESSION
     Dosage: UNK
     Route: 048
     Dates: start: 20110101
  4. LOVENOX [Suspect]
     Indication: DEEP VEIN THROMBOSIS
     Dosage: 60 MG, 2X/DAY
     Route: 058
     Dates: start: 20100101, end: 20120513
  5. LOMOTIL [Concomitant]
     Indication: DIARRHOEA
     Dosage: AS NEEDED
     Route: 048
     Dates: start: 20110101
  6. METFORMIN [Concomitant]
     Indication: CUSHING'S SYNDROME
     Dosage: UNK
     Route: 048
     Dates: start: 20100101
  7. METFORMIN [Concomitant]
     Indication: DIABETES MELLITUS
  8. AXITINIB [Suspect]
     Indication: ADRENOCORTICAL CARCINOMA
     Dosage: 5 MG, 2X/DAY
     Route: 048
     Dates: start: 20120425, end: 20120513
  9. MORPHINE XR [Concomitant]
     Indication: PAIN
     Dosage: UNK
     Route: 048
     Dates: start: 20110101
  10. DEXLANSOPRAZOLE [Concomitant]
     Indication: GASTROOESOPHAGEAL REFLUX DISEASE
     Dosage: UNK
     Route: 048
     Dates: start: 20110101
  11. FOSAMAX [Concomitant]
     Indication: OSTEOPENIA
     Dosage: UNK
     Route: 048
     Dates: start: 20110101
  12. TOPROL-XL [Concomitant]
     Indication: HYPERTENSION
     Dosage: UNK
     Route: 048
     Dates: start: 20110101
  13. IMITREX [Concomitant]
     Indication: MIGRAINE
     Dosage: UNK
     Route: 048
     Dates: start: 20110101
  14. ALDACTONE [Concomitant]
     Indication: HYPERTENSION
     Dosage: UNK
     Route: 048
     Dates: start: 20110101
  15. CALCIUM [Concomitant]
     Indication: SUPPLEMENTATION THERAPY
     Dosage: UNK
     Route: 048
     Dates: start: 20110101
  16. HYDROCORTISONE [Concomitant]
     Indication: SUPPLEMENTATION THERAPY
     Dosage: UNK
     Route: 048
     Dates: start: 20100101

REACTIONS (3)
  - ABDOMINAL PAIN [None]
  - HAEMATOMA [None]
  - HYPERTENSION [None]
